FAERS Safety Report 7889107-4 (Version None)
Quarter: 2011Q4

REPORT INFORMATION
  Report Type: 
  Country: None (occurrence: None)
  Receive Date: 20111103
  Receipt Date: 20111024
  Transmission Date: 20120403
  Serious: Yes (Life-Threatening)
  Sender: FDA-Public Use
  Company Number: BR-BRISTOL-MYERS SQUIBB COMPANY-16209561

PATIENT
  Sex: Female

DRUGS (5)
  1. NIFEDIPINE [Concomitant]
  2. WARFARIN SODIUM [Suspect]
     Indication: ANTIPHOSPHOLIPID SYNDROME
  3. CYCLOBENZAPRINE [Concomitant]
  4. FLUOXETINE HCL [Concomitant]
  5. HYDROCHLOROTHIAZIDE [Concomitant]

REACTIONS (3)
  - OVARIAN HAEMORRHAGE [None]
  - HYPOVOLAEMIC SHOCK [None]
  - OVARIAN CYST [None]
